FAERS Safety Report 7363726-6 (Version None)
Quarter: 2011Q1

REPORT INFORMATION
  Report Type: 
  Country: None (occurrence: None)
  Receive Date: 20110321
  Receipt Date: 20110309
  Transmission Date: 20110831
  Serious: Yes (Death)
  Sender: FDA-Public Use
  Company Number: US-MYLANLABS-2011S1005248

PATIENT
  Sex: Male

DRUGS (1)
  1. ALLOPURINOL TAB [Suspect]
     Indication: GOUT
     Route: 048
     Dates: start: 20080131

REACTIONS (4)
  - MULTI-ORGAN FAILURE [None]
  - TOXIC EPIDERMAL NECROLYSIS [None]
  - RENAL FAILURE [None]
  - INFECTION [None]
